FAERS Safety Report 18992190 (Version 3)
Quarter: 2021Q1

REPORT INFORMATION
  Report Type: Report from Study
  Country: KR (occurrence: KR)
  Receive Date: 20210310
  Receipt Date: 20210319
  Transmission Date: 20210420
  Serious: Yes (Hospitalization)
  Sender: FDA-Public Use
  Company Number: KR-ROCHE-2785412

PATIENT
  Age: 41 Year
  Sex: Male
  Weight: 84 kg

DRUGS (12)
  1. ATEZOLIZUMAB. [Suspect]
     Active Substance: ATEZOLIZUMAB
     Indication: METASTATIC RENAL CELL CARCINOMA
     Dosage: ON 16/FEB/2021, HE RECEIVED THE MOST RECENT DOSE OF ATEZOLIZUMAB (1200 MG) PRIOR TO SERIOUS ADVERSE
     Route: 042
     Dates: start: 20210216
  2. CABOZANTINIB [Suspect]
     Active Substance: CABOZANTINIB
     Indication: METASTATIC RENAL CELL CARCINOMA
     Dosage: THREE 20?MG TABLETS (AS PER PROTOCOL)?ON 05/MAR/2021, HE RECEIVED THE MOST RECENT DOSE OF CABOZANTIN
     Route: 048
     Dates: start: 20210216
  3. DENOGAN [Concomitant]
     Active Substance: PROPACETAMOL HYDROCHLORIDE
     Route: 042
     Dates: start: 20210306, end: 20210309
  4. STILNOX [Concomitant]
     Active Substance: ZOLPIDEM TARTRATE
     Indication: INSOMNIA
     Route: 048
     Dates: start: 202009
  5. HYDRALAZINE [Concomitant]
     Active Substance: HYDRALAZINE HYDROCHLORIDE
     Indication: HYPERTENSION
     Route: 042
     Dates: start: 20210307, end: 20210307
  6. MYPOL (SOUTH KOREA) [Concomitant]
     Indication: TUMOUR PAIN
     Route: 048
     Dates: start: 20210312, end: 20210315
  7. AMORTAN [Concomitant]
     Indication: HYPERTENSION
     Route: 048
     Dates: start: 201912
  8. LIDOCAINE. [Concomitant]
     Active Substance: LIDOCAINE
     Route: 058
     Dates: start: 20210310, end: 20210310
  9. TARGIN PR [Concomitant]
     Indication: PAIN
     Route: 048
     Dates: start: 20201120
  10. GASTER (SOUTH KOREA) [Concomitant]
     Indication: GASTRITIS PROPHYLAXIS
     Route: 042
     Dates: start: 20210306
  11. DUROGESIC D?TRANS [Concomitant]
     Active Substance: FENTANYL
     Indication: TUMOUR PAIN
     Route: 062
     Dates: start: 20210312
  12. PERIOLIMEL N4E [Concomitant]
     Route: 042
     Dates: start: 20210306

REACTIONS (1)
  - Meningitis [Recovering/Resolving]

NARRATIVE: CASE EVENT DATE: 20210306
